FAERS Safety Report 9278254 (Version 1)
Quarter: 2013Q2

REPORT INFORMATION
  Report Type: Spontaneous
  Country: DE (occurrence: DE)
  Receive Date: 20130508
  Receipt Date: 20130508
  Transmission Date: 20140414
  Serious: Yes (Other)
  Sender: FDA-Public Use
  Company Number: DE-PFIZER INC-2013140695

PATIENT
  Sex: Male

DRUGS (1)
  1. LYRICA [Suspect]

REACTIONS (5)
  - Electroencephalogram abnormal [Unknown]
  - Cataplexy [Unknown]
  - Rapid eye movements sleep abnormal [Unknown]
  - Hypotonia [Unknown]
  - Narcolepsy [Unknown]
